APPROVED DRUG PRODUCT: LITHIUM CARBONATE
Active Ingredient: LITHIUM CARBONATE
Strength: 300MG
Dosage Form/Route: CAPSULE;ORAL
Application: A076795 | Product #001
Applicant: APOTEX INC
Approved: Nov 22, 2004 | RLD: No | RS: No | Type: DISCN